FAERS Safety Report 7647472-7 (Version None)
Quarter: 2011Q3

REPORT INFORMATION
  Report Type: 
  Country: None (occurrence: None)
  Receive Date: 20110801
  Receipt Date: 20110712
  Transmission Date: 20111222
  Serious: Yes (Hospitalization)
  Sender: FDA-Public Use
  Company Number: US-GLAXOSMITHKLINE-A0794757A

PATIENT
  Age: 52 Year
  Sex: Male
  Weight: 120.9 kg

DRUGS (1)
  1. AVANDIA [Suspect]
     Indication: TYPE 2 DIABETES MELLITUS
     Route: 048
     Dates: start: 19990910, end: 20011101

REACTIONS (2)
  - MYOCARDIAL INFARCTION [None]
  - MACULAR OEDEMA [None]
